FAERS Safety Report 11918293 (Version 1)
Quarter: 2016Q1

REPORT INFORMATION
  Report Type: Spontaneous
  Country: US (occurrence: US)
  Receive Date: 20160115
  Receipt Date: 20160115
  Transmission Date: 20160526
  Serious: Yes (Other)
  Sender: FDA-Public Use
  Company Number: US-ROCHE-1693214

PATIENT
  Sex: Male

DRUGS (3)
  1. TESTOSTERONE. [Concomitant]
     Active Substance: TESTOSTERONE
     Indication: BLOOD TESTOSTERONE DECREASED
     Route: 030
     Dates: start: 200208, end: 200511
  2. SOMATROPIN [Suspect]
     Active Substance: SOMATROPIN
     Dosage: DOSE REDUCED TO HALF
     Route: 065
     Dates: start: 200309, end: 200511
  3. SOMATROPIN [Suspect]
     Active Substance: SOMATROPIN
     Indication: GROWTH HORMONE DEFICIENCY
     Route: 065
     Dates: start: 200004, end: 200309

REACTIONS (2)
  - Adenoma benign [Unknown]
  - Gigantism [Unknown]

NARRATIVE: CASE EVENT DATE: 2009
